FAERS Safety Report 6107909-1 (Version None)
Quarter: 2009Q1

REPORT INFORMATION
  Report Type: 
  Country: None (occurrence: None)
  Receive Date: 20090309
  Receipt Date: 20090304
  Transmission Date: 20090719
  Serious: Yes (Other)
  Sender: FDA-Public Use
  Company Number: US-MERCK-0903USA00744

PATIENT
  Sex: Male

DRUGS (1)
  1. CANCIDAS [Suspect]
     Route: 065
     Dates: start: 20090201

REACTIONS (2)
  - CONVULSION [None]
  - DYSKINESIA [None]
